FAERS Safety Report 11544700 (Version 1)
Quarter: 2015Q3

REPORT INFORMATION
  Report Type: Spontaneous
  Country: US (occurrence: None)
  Receive Date: 20150923
  Receipt Date: 20150923
  Transmission Date: 20151125
  Serious: Yes (Life-Threatening, Other)
  Sender: FDA-Public Use
  Company Number: None

PATIENT
  Age: 77 Year
  Sex: Female

DRUGS (1)
  1. LOVASTATIN. [Suspect]
     Active Substance: LOVASTATIN
     Route: 048
     Dates: start: 201211, end: 201503

REACTIONS (1)
  - Pancreatitis [None]

NARRATIVE: CASE EVENT DATE: 201403
